FAERS Safety Report 7088268-7 (Version None)
Quarter: 2010Q4

REPORT INFORMATION
  Report Type: 
  Country: None (occurrence: None)
  Receive Date: 20101108
  Receipt Date: 20100927
  Transmission Date: 20110411
  Serious: Yes (Death, Other)
  Sender: FDA-Public Use
  Company Number: US-BAXTER-2010BH001154

PATIENT
  Age: 58 Year
  Sex: Female
  Weight: 90 kg

DRUGS (47)
  1. HEPARIN SODIUM INJECTION [Suspect]
     Indication: HAEMODIALYSIS
     Route: 010
     Dates: start: 20071001, end: 20080201
  2. HEPARIN SODIUM INJECTION [Suspect]
     Indication: CATHETERISATION CARDIAC
     Route: 010
     Dates: start: 20071001, end: 20080201
  3. HEPARIN SODIUM INJECTION [Suspect]
     Indication: ACUTE MYOCARDIAL INFARCTION
     Route: 010
     Dates: start: 20071001, end: 20080201
  4. HEPARIN SODIUM INJECTION [Suspect]
     Indication: VASCULAR GRAFT
     Route: 010
     Dates: start: 20071001, end: 20080201
  5. HEPARIN SODIUM INJECTION [Suspect]
     Indication: CORONARY ARTERY BYPASS
     Route: 010
     Dates: start: 20071001, end: 20080201
  6. HEPARIN SODIUM INJECTION [Suspect]
     Route: 040
     Dates: start: 20080301, end: 20080301
  7. HEPARIN SODIUM INJECTION [Suspect]
     Route: 040
     Dates: start: 20080301, end: 20080301
  8. HEPARIN SODIUM INJECTION [Suspect]
     Route: 040
     Dates: start: 20080301, end: 20080301
  9. HEPARIN SODIUM INJECTION [Suspect]
     Route: 040
     Dates: start: 20080301, end: 20080301
  10. HEPARIN SODIUM INJECTION [Suspect]
     Route: 040
     Dates: start: 20080301, end: 20080301
  11. HEPARIN SODIUM INJECTION [Suspect]
     Route: 065
     Dates: start: 20090228, end: 20090228
  12. HEPARIN SODIUM INJECTION [Suspect]
     Route: 065
     Dates: start: 20090228, end: 20090228
  13. HEPARIN SODIUM INJECTION [Suspect]
     Route: 065
     Dates: start: 20090228, end: 20090228
  14. HEPARIN SODIUM INJECTION [Suspect]
     Route: 065
     Dates: start: 20090228, end: 20090228
  15. HEPARIN SODIUM INJECTION [Suspect]
     Route: 065
     Dates: start: 20090228, end: 20090228
  16. HEPARIN SODIUM INJECTION [Suspect]
     Route: 042
     Dates: start: 20080303, end: 20080303
  17. HEPARIN SODIUM INJECTION [Suspect]
     Route: 042
     Dates: start: 20080303, end: 20080303
  18. HEPARIN SODIUM INJECTION [Suspect]
     Route: 042
     Dates: start: 20080303, end: 20080303
  19. HEPARIN SODIUM INJECTION [Suspect]
     Route: 042
     Dates: start: 20080303, end: 20080303
  20. HEPARIN SODIUM INJECTION [Suspect]
     Route: 042
     Dates: start: 20080303, end: 20080303
  21. HEPARIN SODIUM INJECTION [Suspect]
     Route: 042
     Dates: start: 20080303, end: 20080303
  22. HEPARIN SODIUM INJECTION [Suspect]
     Route: 042
     Dates: start: 20080303, end: 20080303
  23. HEPARIN SODIUM INJECTION [Suspect]
     Route: 042
     Dates: start: 20080303, end: 20080303
  24. HEPARIN SODIUM INJECTION [Suspect]
     Route: 042
     Dates: start: 20080303, end: 20080303
  25. HEPARIN SODIUM INJECTION [Suspect]
     Route: 042
     Dates: start: 20080303, end: 20080303
  26. HEPARIN SODIUM INJECTION [Suspect]
     Route: 058
     Dates: start: 20080904, end: 20080909
  27. HEPARIN SODIUM INJECTION [Suspect]
     Route: 058
     Dates: start: 20080904, end: 20080909
  28. HEPARIN SODIUM INJECTION [Suspect]
     Route: 058
     Dates: start: 20080904, end: 20080909
  29. HEPARIN SODIUM INJECTION [Suspect]
     Route: 058
     Dates: start: 20080904, end: 20080909
  30. HEPARIN SODIUM INJECTION [Suspect]
     Route: 058
     Dates: start: 20080904, end: 20080909
  31. HEPARIN SODIUM INJECTION [Suspect]
     Route: 065
     Dates: start: 20081001, end: 20081001
  32. HEPARIN SODIUM INJECTION [Suspect]
     Route: 065
     Dates: start: 20081001, end: 20081001
  33. HEPARIN SODIUM INJECTION [Suspect]
     Route: 065
     Dates: start: 20081001, end: 20081001
  34. HEPARIN SODIUM INJECTION [Suspect]
     Route: 065
     Dates: start: 20081001, end: 20081001
  35. HEPARIN SODIUM INJECTION [Suspect]
     Route: 065
     Dates: start: 20081001, end: 20081001
  36. HEPARIN SODIUM 5,000 UNITS IN DEXTROSE 5% [Suspect]
     Indication: ACUTE MYOCARDIAL INFARCTION
     Route: 041
     Dates: start: 20080301
  37. HEPARIN SODIUM 5,000 UNITS IN DEXTROSE 5% [Suspect]
     Route: 041
     Dates: start: 20090225, end: 20090228
  38. HEPARIN SODIUM 5,000 UNITS IN DEXTROSE 5% [Suspect]
     Route: 041
     Dates: start: 20090302, end: 20090303
  39. RENAGEL [Concomitant]
     Indication: PRODUCT USED FOR UNKNOWN INDICATION
     Route: 065
  40. TOPROL-XL [Concomitant]
     Indication: PRODUCT USED FOR UNKNOWN INDICATION
     Route: 065
  41. ASPIRIN [Concomitant]
     Indication: PRODUCT USED FOR UNKNOWN INDICATION
     Route: 065
  42. DAILY MULTIVITAMIN [Concomitant]
     Indication: PRODUCT USED FOR UNKNOWN INDICATION
     Route: 065
  43. DARBEPOETIN ALFA [Concomitant]
     Indication: PRODUCT USED FOR UNKNOWN INDICATION
     Route: 065
  44. LIPITOR [Concomitant]
     Indication: PRODUCT USED FOR UNKNOWN INDICATION
     Route: 065
  45. CANDESARTAN CILEXETIL [Concomitant]
     Indication: PRODUCT USED FOR UNKNOWN INDICATION
     Route: 065
  46. METOPROLOL [Concomitant]
     Indication: PRODUCT USED FOR UNKNOWN INDICATION
     Route: 042
  47. RENAGEL [Concomitant]
     Route: 065

REACTIONS (20)
  - ABDOMINAL PAIN [None]
  - ACUTE MYOCARDIAL INFARCTION [None]
  - ANEURYSM [None]
  - ARRHYTHMIA [None]
  - ARTERIAL RUPTURE [None]
  - ARTERIOVENOUS FISTULA SITE HAEMORRHAGE [None]
  - ARTERIOVENOUS GRAFT SITE INFECTION [None]
  - BLOOD PRESSURE DECREASED [None]
  - CARDIOPULMONARY FAILURE [None]
  - ERYTHEMA [None]
  - FATIGUE [None]
  - HEADACHE [None]
  - HEPARIN-INDUCED THROMBOCYTOPENIA [None]
  - MALAISE [None]
  - MUSCLE SPASMS [None]
  - NAUSEA [None]
  - PULMONARY ALVEOLAR HAEMORRHAGE [None]
  - RESPIRATORY DISTRESS [None]
  - STAPHYLOCOCCAL INFECTION [None]
  - VOMITING [None]
